FAERS Safety Report 13256223 (Version 7)
Quarter: 2017Q1

REPORT INFORMATION
  Report Type: Spontaneous
  Country: FR (occurrence: FR)
  Receive Date: 20170221
  Receipt Date: 20170313
  Transmission Date: 20170428
  Serious: Yes (Hospitalization)
  Sender: FDA-Public Use
  Company Number: FR-PFIZER INC-2017075394

PATIENT
  Age: 88 Year
  Sex: Female

DRUGS (11)
  1. DIGOXINE NATIVELLE [Suspect]
     Active Substance: DIGOXIN
     Indication: ATRIAL FIBRILLATION
     Dosage: 0.125 MG, DAILY
     Route: 048
     Dates: start: 20170111, end: 20170124
  2. SYMBICORT [Concomitant]
     Active Substance: BUDESONIDE\FORMOTEROL FUMARATE DIHYDRATE
     Dosage: 1 DF, 2X/DAY (1 DF = 400/12 MCG 1 INHALATION TWICE DAILYATION TWICE DAILY)
     Route: 065
  3. VENTOLINE [Concomitant]
     Active Substance: ALBUTEROL
     Dosage: 1 DF, PRN (1 DF = 2 TO 3 PUFFS)
     Route: 065
  4. SKENAN [Concomitant]
     Active Substance: MORPHINE SULFATE
     Dosage: 90 MG, 2X/DAY
     Route: 065
  5. DIGOXINE NATIVELLE [Suspect]
     Active Substance: DIGOXIN
     Indication: CONDUCTION DISORDER
  6. DIGOXINE NATIVELLE [Suspect]
     Active Substance: DIGOXIN
     Indication: ATRIAL FIBRILLATION
     Dosage: 0.5 DF, DAILY
     Route: 042
     Dates: start: 20170108, end: 20170108
  7. VESICARE [Concomitant]
     Active Substance: SOLIFENACIN SUCCINATE
     Dosage: 5 MG, 1X/DAY
     Route: 065
  8. DIGOXINE NATIVELLE [Suspect]
     Active Substance: DIGOXIN
     Indication: CONDUCTION DISORDER
     Dosage: 0.5 DF, DAILY
     Route: 042
     Dates: start: 20170110, end: 20170110
  9. CORDARONE [Suspect]
     Active Substance: AMIODARONE HYDROCHLORIDE
     Indication: ATRIAL FIBRILLATION
     Dosage: 100 MG, 1X/DAY (100 MG ONCE DAILY 5 DAYS A WEEK)
     Route: 048
     Dates: end: 20170111
  10. ELIQUIS [Interacting]
     Active Substance: APIXABAN
     Indication: CEREBROVASCULAR ACCIDENT PROPHYLAXIS
     Dosage: 2.5 MG, 2X/DAY
     Route: 048
     Dates: start: 20170117
  11. FOSAMAX T [Concomitant]
     Active Substance: ALENDRONATE SODIUM
     Dosage: 70 MG, WEEKLY
     Route: 065

REACTIONS (9)
  - Overdose [Unknown]
  - Labelled drug-drug interaction medication error [Unknown]
  - Cardioactive drug level increased [Recovered/Resolved]
  - Drug ineffective [Unknown]
  - Abdominal pain [Recovered/Resolved]
  - Lung disorder [Recovered/Resolved]
  - Cardiac failure [Recovered/Resolved]
  - Drug interaction [Recovered/Resolved]
  - Pyrexia [Recovered/Resolved]

NARRATIVE: CASE EVENT DATE: 201612
